FAERS Safety Report 6532540-3 (Version None)
Quarter: 2010Q1

REPORT INFORMATION
  Report Type: 
  Country: None (occurrence: None)
  Receive Date: 20100111
  Receipt Date: 20091231
  Transmission Date: 20100710
  Serious: Yes (Other)
  Sender: FDA-Public Use
  Company Number: US-JNJFOC-20100100439

PATIENT
  Sex: Female
  Weight: 56.7 kg

DRUGS (12)
  1. DURAGESIC-100 [Suspect]
     Indication: BACK PAIN
     Route: 062
  2. DURAGESIC-100 [Suspect]
     Route: 062
  3. KLONOPIN [Concomitant]
     Route: 048
  4. PREDNISONE [Concomitant]
     Indication: MUSCLE DISORDER
     Route: 048
  5. LEVOTHYROXINE SODIUM [Concomitant]
     Indication: THYROID DISORDER
     Route: 048
  6. WELLBUTRIN [Concomitant]
     Indication: MUSCLE DISORDER
     Route: 048
  7. CELEBREX [Concomitant]
     Indication: MUSCLE DISORDER
     Route: 048
  8. PREVACID [Concomitant]
     Indication: GASTRIC DISORDER
     Route: 048
  9. VITAMIN D [Concomitant]
     Indication: BONE DISORDER
     Route: 048
  10. MIRALAX [Concomitant]
     Indication: CONSTIPATION
     Route: 065
  11. AZATHIOPRINE [Concomitant]
     Indication: MUSCLE DISORDER
     Route: 048
  12. SIMVASTATIN [Concomitant]
     Indication: BLOOD CHOLESTEROL
     Route: 048

REACTIONS (5)
  - CONSTIPATION [None]
  - DRUG INEFFECTIVE [None]
  - HIATUS HERNIA [None]
  - INAPPROPRIATE SCHEDULE OF DRUG ADMINISTRATION [None]
  - OESOPHAGEAL HYPOMOTILITY [None]
